FAERS Safety Report 11031024 (Version 1)
Quarter: 2015Q2

REPORT INFORMATION
  Report Type: Spontaneous
  Country: GB (occurrence: GB)
  Receive Date: 20150415
  Receipt Date: 20150415
  Transmission Date: 20150821
  Serious: Yes (Other)
  Sender: FDA-Public Use
  Company Number: GB-PFIZER INC-2015125146

PATIENT
  Age: 64 Year
  Sex: Female
  Weight: 93 kg

DRUGS (10)
  1. GABAPENTIN. [Suspect]
     Active Substance: GABAPENTIN
     Indication: FACIAL PAIN
     Dosage: 100 MG, ONCE TO TWICE DAILY
     Route: 048
     Dates: start: 20150304
  2. SIMVASTATIN. [Concomitant]
     Active Substance: SIMVASTATIN
     Dosage: UNK
  3. GABAPENTIN. [Suspect]
     Active Substance: GABAPENTIN
     Dosage: 300 MG, 3X/DAY
     Route: 048
     Dates: start: 20150309
  4. BENDROFLUMETHIAZIDE [Concomitant]
     Active Substance: BENDROFLUMETHIAZIDE
     Dosage: UNK
  5. FLUTICASONE FUROATE [Concomitant]
     Active Substance: FLUTICASONE FUROATE
     Dosage: UNK
  6. VENTOLIN [Concomitant]
     Active Substance: ALBUTEROL SULFATE
  7. GABAPENTIN. [Suspect]
     Active Substance: GABAPENTIN
     Dosage: 100 MG, 3X/DAY
     Route: 048
  8. MONTELUKAST [Concomitant]
     Active Substance: MONTELUKAST SODIUM
     Dosage: UNK
  9. GABAPENTIN. [Suspect]
     Active Substance: GABAPENTIN
     Dosage: 1500 MG DAILY, 300MG TWICE A DAY AND 900MG AT NIGHT
     Route: 048
     Dates: end: 20150331
  10. FOSTAIR [Concomitant]
     Active Substance: BECLOMETHASONE\FORMOTEROL
     Dosage: UNK

REACTIONS (2)
  - Leukopenia [Recovered/Resolved]
  - Neutropenia [Recovered/Resolved]

NARRATIVE: CASE EVENT DATE: 20150304
